FAERS Safety Report 17805229 (Version 2)
Quarter: 2020Q2

REPORT INFORMATION
  Report Type: Spontaneous
  Country: JP (occurrence: JP)
  Receive Date: 20200520
  Receipt Date: 20200520
  Transmission Date: 20200714
  Serious: Yes (Other)
  Sender: FDA-Public Use
  Company Number: JP-ORION CORPORATION ORION PHARMA-ENTC2020-0157

PATIENT

DRUGS (3)
  1. STALEVO [Suspect]
     Active Substance: CARBIDOPA\ENTACAPONE\LEVODOPA
     Indication: PRODUCT USED FOR UNKNOWN INDICATION
     Route: 048
  2. DOPASTON [Concomitant]
     Active Substance: LEVODOPA
     Route: 065
  3. STALEVO [Suspect]
     Active Substance: CARBIDOPA\ENTACAPONE\LEVODOPA
     Route: 050

REACTIONS (5)
  - Blood creatine phosphokinase increased [Unknown]
  - General physical health deterioration [Unknown]
  - Chromaturia [Unknown]
  - Dysphagia [Unknown]
  - Product use issue [Unknown]
